FAERS Safety Report 7378423-0 (Version None)
Quarter: 2011Q1

REPORT INFORMATION
  Report Type: 
  Country: None (occurrence: None)
  Receive Date: 20110328
  Receipt Date: 20110317
  Transmission Date: 20110831
  Serious: Yes (Other)
  Sender: FDA-Public Use
  Company Number: GB-MERCK-1103USA02468

PATIENT
  Age: 45 Year
  Sex: Female

DRUGS (8)
  1. YONDELIS [Suspect]
     Indication: CHEMOTHERAPY
     Route: 042
     Dates: start: 20101004
  2. DECADRON [Suspect]
     Indication: PREMEDICATION
     Route: 048
     Dates: start: 20100823
  3. YONDELIS [Suspect]
     Indication: LIPOSARCOMA
     Route: 042
     Dates: start: 20101004
  4. YONDELIS [Suspect]
     Route: 042
     Dates: start: 20100823
  5. YONDELIS [Suspect]
     Route: 042
     Dates: start: 20100510
  6. CITALOPRAM [Concomitant]
     Indication: DEPRESSION
     Route: 048
  7. YONDELIS [Suspect]
     Route: 042
     Dates: start: 20100823
  8. YONDELIS [Suspect]
     Route: 042
     Dates: start: 20100510

REACTIONS (2)
  - BLOOD CREATINE PHOSPHOKINASE INCREASED [None]
  - NEUTROPENIA [None]
